FAERS Safety Report 5655673-2 (Version None)
Quarter: 2008Q1

REPORT INFORMATION
  Report Type: 
  Country: None (occurrence: None)
  Receive Date: 20080212
  Receipt Date: 20071109
  Transmission Date: 20080703
  Serious: Yes (Other)
  Sender: FDA-Public Use
  Company Number: MC200700702

PATIENT
  Age: 58 Year
  Sex: Female
  Weight: 104.3 kg

DRUGS (3)
  1. ANGIOMAX [Suspect]
     Indication: PERCUTANEOUS CORONARY INTERVENTION
     Dosage: 15 ML, BOLUS, IV BOLUS, 35 ML, HR, INTRAVENOUS
     Route: 040
     Dates: start: 20071109, end: 20071109
  2. ANGIOMAX [Suspect]
     Indication: PERCUTANEOUS CORONARY INTERVENTION
     Dosage: 15 ML, BOLUS, IV BOLUS, 35 ML, HR, INTRAVENOUS
     Route: 040
     Dates: start: 20071109
  3. TENECTEPLASE(TENECTEPLASE) [Suspect]
     Dosage: BEFORE PROCEDURE, UNK

REACTIONS (2)
  - HAEMORRHAGE [None]
  - INTERNATIONAL NORMALISED RATIO INCREASED [None]
